FAERS Safety Report 15803679 (Version 3)
Quarter: 2019Q2

REPORT INFORMATION
  Report Type: Report from Study
  Country: PL (occurrence: PL)
  Receive Date: 20190109
  Receipt Date: 20190530
  Transmission Date: 20190711
  Serious: Yes (Other)
  Sender: FDA-Public Use
  Company Number: PL-CHIESI USA, INC.-PL-2019CHI000005

PATIENT

DRUGS (4)
  1. CUROSURF [Suspect]
     Active Substance: PORACTANT ALFA
     Indication: NEONATAL RESPIRATORY FAILURE
     Dosage: 160 MG, SINGLE
     Route: 039
     Dates: start: 20181111, end: 20181111
  2. CUROSURF [Suspect]
     Active Substance: PORACTANT ALFA
     Indication: OFF LABEL USE
  3. CAFFEINE CITRATE. [Concomitant]
     Active Substance: CAFFEINE CITRATE
     Indication: PREMATURE BABY
     Dosage: 20 MG/KG, UNK (AT THE FIRST DAY OF LIFE)
     Dates: start: 20181111, end: 20181111
  4. CAFFEINE CITRATE. [Concomitant]
     Active Substance: CAFFEINE CITRATE
     Dosage: 10 MG/KG, UNK (THE NEXT DAYS)

REACTIONS (3)
  - Neonatal hypoxia [Recovered/Resolved]
  - Product administration error [Recovered/Resolved]
  - Off label use [Unknown]

NARRATIVE: CASE EVENT DATE: 20181111
